FAERS Safety Report 19232366 (Version 1)
Quarter: 2021Q2

REPORT INFORMATION
  Report Type: Spontaneous
  Country: CN (occurrence: CN)
  Receive Date: 20210507
  Receipt Date: 20210507
  Transmission Date: 20210717
  Serious: Yes (Other)
  Sender: FDA-Public Use
  Company Number: CN-ASTRAZENECA-2021A395203

PATIENT
  Age: 27411 Day
  Sex: Female
  Weight: 77 kg

DRUGS (1)
  1. FORXIGA [Suspect]
     Active Substance: DAPAGLIFLOZIN
     Indication: DIABETES MELLITUS
     Route: 048
     Dates: start: 20210428, end: 20210429

REACTIONS (5)
  - Dysuria [Recovering/Resolving]
  - Leukocytosis [Recovering/Resolving]
  - Abdominal discomfort [Recovering/Resolving]
  - Micturition urgency [Recovering/Resolving]
  - Pollakiuria [Recovering/Resolving]

NARRATIVE: CASE EVENT DATE: 20210428
